FAERS Safety Report 4947795-6 (Version None)
Quarter: 2006Q1

REPORT INFORMATION
  Report Type: 
  Country: None (occurrence: None)
  Receive Date: 20060320
  Receipt Date: 20060202
  Transmission Date: 20060701
  Serious: Yes (Hospitalization)
  Sender: FDA-Public Use
  Company Number: FR-GLAXOSMITHKLINE-B0409464A

PATIENT
  Age: 70 Year
  Sex: Female

DRUGS (6)
  1. LAMICTAL [Suspect]
     Indication: BIPOLAR DISORDER
     Route: 048
     Dates: start: 20060122, end: 20060202
  2. TURPENTINE OIL [Suspect]
     Route: 048
     Dates: start: 20060131, end: 20060131
  3. RIVOTRIL [Suspect]
     Dosage: 2MG PER DAY
     Route: 048
     Dates: start: 20060116, end: 20060202
  4. MOCLAMINE [Concomitant]
     Dosage: 150MG PER DAY
     Route: 048
     Dates: start: 20050615, end: 20060202
  5. LEVOTHYROX [Concomitant]
     Indication: HYPOTHYROIDISM
     Dosage: 100MCG PER DAY
     Route: 048
  6. IMOVANE [Concomitant]
     Dosage: 7.5MG AS REQUIRED
     Route: 048
     Dates: start: 20050701

REACTIONS (7)
  - CONJUNCTIVITIS [None]
  - DIARRHOEA [None]
  - ERYTHEMA [None]
  - SKIN EXFOLIATION [None]
  - SUICIDE ATTEMPT [None]
  - TOXIC EPIDERMAL NECROLYSIS [None]
  - VULVOVAGINITIS [None]
